FAERS Safety Report 14287986 (Version 1)
Quarter: 2017Q4

REPORT INFORMATION
  Report Type: Spontaneous
  Country: US (occurrence: US)
  Receive Date: 20171214
  Receipt Date: 20171214
  Transmission Date: 20180321
  Serious: No
  Sender: FDA-Public Use
  Company Number: US-PERRIGO-17US002010

PATIENT
  Age: 69 Year
  Sex: Female
  Weight: 51.7 kg

DRUGS (2)
  1. BACITRACIN. [Suspect]
     Active Substance: BACITRACIN
     Indication: DRY EYE
     Dosage: SMALL RIBBON EACH EYE, SINGLE
     Route: 047
     Dates: start: 20170225, end: 20170225
  2. RESTASIS [Concomitant]
     Active Substance: CYCLOSPORINE
     Indication: DRY EYE
     Dosage: UNK, QAM
     Route: 065
     Dates: start: 201701

REACTIONS (4)
  - Off label use [Recovered/Resolved]
  - Eye irritation [Recovered/Resolved]
  - Eye swelling [Recovering/Resolving]
  - Ocular hyperaemia [Recovering/Resolving]

NARRATIVE: CASE EVENT DATE: 20170225
